FAERS Safety Report 5382211-4 (Version None)
Quarter: 2007Q3

REPORT INFORMATION
  Report Type: 
  Country: None (occurrence: None)
  Receive Date: 20070709
  Receipt Date: 20070629
  Transmission Date: 20080115
  Serious: No
  Sender: FDA-Public Use
  Company Number: US-ASTRAZENECA-2007UW15517

PATIENT
  Age: 13 Year

DRUGS (1)
  1. SEROQUEL [Suspect]
     Route: 048
     Dates: end: 20070629

REACTIONS (1)
  - WHITE BLOOD CELL COUNT DECREASED [None]
